FAERS Safety Report 25016390 (Version 1)
Quarter: 2025Q1

REPORT INFORMATION
  Report Type: Spontaneous
  Country: US (occurrence: US)
  Receive Date: 20250227
  Receipt Date: 20250227
  Transmission Date: 20250408
  Serious: Yes (Death, Other)
  Sender: STRIDES
  Company Number: US-STRIDES ARCOLAB LIMITED-2025SP002448

PATIENT
  Age: 54 Year
  Sex: Male

DRUGS (3)
  1. ETOPOSIDE [Suspect]
     Active Substance: ETOPOSIDE
     Indication: Pancreatic neuroendocrine tumour metastatic
     Route: 065
  2. CARBOPLATIN [Suspect]
     Active Substance: CARBOPLATIN
     Indication: Pancreatic neuroendocrine tumour metastatic
     Route: 065
  3. SELPERCATINIB [Concomitant]
     Active Substance: SELPERCATINIB
     Indication: Pancreatic neuroendocrine tumour metastatic
     Route: 065

REACTIONS (3)
  - Neoplasm progression [Fatal]
  - Drug resistance [Fatal]
  - Off label use [Unknown]
